FAERS Safety Report 8837090 (Version 2)
Quarter: 2012Q4

REPORT INFORMATION
  Report Type: 
  Country: US (occurrence: US)
  Receive Date: 20121012
  Receipt Date: 20121022
  Transmission Date: 20130627
  Serious: Yes (Other)
  Sender: FDA-Public Use
  Company Number: US-BRISTOL-MYERS SQUIBB COMPANY-16866063

PATIENT
  Age: 86 Year
  Sex: Male

DRUGS (1)
  1. SPRYCEL [Suspect]
     Dosage: tabs
     Dates: start: 20060920

REACTIONS (2)
  - Pleural effusion [Unknown]
  - Pulmonary mass [Not Recovered/Not Resolved]
